FAERS Safety Report 6211175-6 (Version None)
Quarter: 2009Q2

REPORT INFORMATION
  Report Type: 
  Country: None (occurrence: None)
  Receive Date: 20090602
  Receipt Date: 20090522
  Transmission Date: 20091009
  Serious: Yes (Life-Threatening, Hospitalization)
  Sender: FDA-Public Use
  Company Number: US-ROCHE-630775

PATIENT
  Sex: Male
  Weight: 104 kg

DRUGS (9)
  1. CAPECITABINE [Suspect]
     Dosage: 750 MG/M2, BID
     Route: 048
     Dates: end: 20090214
  2. BEVACIZUMAB [Suspect]
     Dosage: 5 MG/M2, Q14D
     Route: 042
     Dates: start: 20081125, end: 20090214
  3. BEVACIZUMAB [Suspect]
     Dosage: 5 MG/M2, Q14D
     Route: 042
     Dates: start: 20081125, end: 20090214
  4. OXALIPLATIN [Suspect]
     Dosage: 85 MG/M2, Q14D
     Route: 042
     Dates: end: 20090214
  5. OXALIPLATIN [Suspect]
     Dosage: 85 MG/M2, Q14D
     Route: 042
     Dates: end: 20090214
  6. LACTULOSE [Concomitant]
     Indication: CONSTIPATION
     Dosage: 10 G, BID
     Dates: start: 20090203
  7. DOCUSATE SODIUM [Concomitant]
     Indication: CONSTIPATION
     Dosage: 100 MG, BID
     Dates: start: 20081028
  8. CLINDAMYCIN [Concomitant]
     Indication: ACNE
     Dosage: 1 %, BID
     Dates: start: 20081223
  9. VICODIN [Concomitant]
     Indication: PAIN
     Dosage: UNK
     Dates: start: 20090208

REACTIONS (1)
  - LARGE INTESTINE PERFORATION [None]
